FAERS Safety Report 11007124 (Version 1)
Quarter: 2015Q2

REPORT INFORMATION
  Report Type: Spontaneous
  Country: US (occurrence: US)
  Receive Date: 20150409
  Receipt Date: 20150409
  Transmission Date: 20150821
  Serious: Yes (Other)
  Sender: FDA-Public Use
  Company Number: US-SA-2015SA044410

PATIENT
  Age: 56 Year
  Sex: Female

DRUGS (5)
  1. DELZICOL [Concomitant]
     Active Substance: MESALAMINE
  2. AUBAGIO [Suspect]
     Active Substance: TERIFLUNOMIDE
     Indication: MULTIPLE SCLEROSIS
     Route: 048
     Dates: start: 201410
  3. AMANTADINE [Concomitant]
     Active Substance: AMANTADINE
  4. BACLOFEN. [Concomitant]
     Active Substance: BACLOFEN
  5. LISINOPRIL. [Concomitant]
     Active Substance: LISINOPRIL

REACTIONS (3)
  - Glossodynia [Unknown]
  - Decreased appetite [Unknown]
  - Seizure [Unknown]
